FAERS Safety Report 5319198-6 (Version None)
Quarter: 2007Q2

REPORT INFORMATION
  Report Type: 
  Country: None (occurrence: None)
  Receive Date: 20070508
  Receipt Date: 20070502
  Transmission Date: 20071010
  Serious: Yes (Other)
  Sender: FDA-Public Use
  Company Number: CA-ASTRAZENECA-2007UW09467

PATIENT
  Age: 76 Year
  Sex: Female

DRUGS (4)
  1. ARIMIDEX [Suspect]
     Indication: BREAST CANCER
     Route: 048
     Dates: start: 20060801
  2. FOSAMAX [Suspect]
     Indication: OSTEOPOROSIS
     Dates: end: 20070401
  3. CALCIUM CHLORIDE [Concomitant]
  4. VITAMIN D [Concomitant]

REACTIONS (3)
  - HYPOAESTHESIA [None]
  - OSTEONECROSIS [None]
  - PAIN IN JAW [None]
